FAERS Safety Report 8160967-5 (Version None)
Quarter: 2012Q1

REPORT INFORMATION
  Report Type: 
  Country: None (occurrence: None)
  Receive Date: 20120223
  Receipt Date: 20120217
  Transmission Date: 20120608
  Serious: Yes (Hospitalization, Other)
  Sender: FDA-Public Use
  Company Number: US-GILEAD-2011-0039322

PATIENT
  Age: 30 Year
  Sex: Female

DRUGS (4)
  1. TENOFOVIR DISOPROXIL FUMARATE [Suspect]
     Indication: PROPHYLAXIS AGAINST HIV INFECTION
     Dates: start: 20100517, end: 20110221
  2. LORATADINE [Concomitant]
     Dates: start: 20110221, end: 20110302
  3. ACETAMINOPHEN [Concomitant]
     Dates: start: 20110221, end: 20110224
  4. ZECUF SYRUP [Concomitant]
     Dates: start: 20110221, end: 20110226

REACTIONS (2)
  - ABORTION SPONTANEOUS [None]
  - URINARY TRACT INFECTION [None]
